APPROVED DRUG PRODUCT: ABILIFY
Active Ingredient: ARIPIPRAZOLE
Strength: 30MG **Federal Register determination that product was not discontinued or withdrawn for safety or effectiveness reasons**
Dosage Form/Route: TABLET, ORALLY DISINTEGRATING;ORAL
Application: N021729 | Product #005
Applicant: OTSUKA PHARMACEUTICAL CO LTD
Approved: Jun 7, 2006 | RLD: Yes | RS: No | Type: DISCN